FAERS Safety Report 4433417-X (Version None)
Quarter: 2004Q3

REPORT INFORMATION
  Report Type: 
  Country: None (occurrence: None)
  Receive Date: 20040824
  Receipt Date: 20040813
  Transmission Date: 20050211
  Serious: Yes (Death, Life-Threatening, Hospitalization)
  Sender: FDA-Public Use
  Company Number: GB-JNJFOC-20040804464

PATIENT
  Age: 74 Year
  Sex: Male

DRUGS (4)
  1. REMICADE [Suspect]
     Indication: RHEUMATOID ARTHRITIS
     Dosage: 228 MG, INTRAVENOUS
     Route: 042
     Dates: start: 20030215, end: 20040210
  2. METHOTREXATE [Concomitant]
  3. SULPHASALAZINE (SULPHASALAZINE) [Concomitant]
  4. CYCLOSPORINE [Concomitant]

REACTIONS (4)
  - COLLAPSE OF LUNG [None]
  - PLEURAL EFFUSION [None]
  - PLEURAL FIBROSIS [None]
  - PULMONARY MASS [None]
